FAERS Safety Report 10658075 (Version 2)
Quarter: 2015Q1

REPORT INFORMATION
  Report Type: Spontaneous
  Country: US (occurrence: US)
  Receive Date: 20141217
  Receipt Date: 20150114
  Transmission Date: 20150720
  Serious: Yes (Hospitalization, Other)
  Sender: FDA-Public Use
  Company Number: US-GILEAD-2014-0127731

PATIENT
  Age: 62 Year
  Sex: Female

DRUGS (19)
  1. HYDROCODONE BITARTRATE. [Concomitant]
     Active Substance: HYDROCODONE BITARTRATE
  2. LETAIRIS [Suspect]
     Active Substance: AMBRISENTAN
     Indication: PULMONARY ARTERIAL HYPERTENSION
     Dosage: 10 MG, QD
     Route: 065
     Dates: start: 20141014
  3. BUMETANIDE. [Concomitant]
     Active Substance: BUMETANIDE
  4. SIMVASTATIN. [Concomitant]
     Active Substance: SIMVASTATIN
  5. FERROUS SULFATE [Concomitant]
     Active Substance: FERROUS SULFATE\FERROUS SULFATE, DRIED
  6. PANTOPRAZOLE [Concomitant]
     Active Substance: PANTOPRAZOLE SODIUM
  7. BONIVA [Concomitant]
     Active Substance: IBANDRONATE SODIUM
  8. ADVAIR DISCUS [Concomitant]
  9. ACTOS [Concomitant]
     Active Substance: PIOGLITAZONE HYDROCHLORIDE
  10. ADCIRCA [Suspect]
     Active Substance: TADALAFIL
     Indication: PRODUCT USED FOR UNKNOWN INDICATION
     Route: 065
  11. POTASSIUM CL [Concomitant]
     Active Substance: POTASSIUM CHLORIDE
  12. TYLENOL [Concomitant]
     Active Substance: ACETAMINOPHEN
  13. PREDNISOLONE. [Concomitant]
     Active Substance: PREDNISOLONE
  14. ALLOPURINOL. [Concomitant]
     Active Substance: ALLOPURINOL
  15. FUROSEMIDE. [Concomitant]
     Active Substance: FUROSEMIDE
  16. WARFARIN [Concomitant]
     Active Substance: WARFARIN
  17. VITAMIN D [Concomitant]
     Active Substance: CHOLECALCIFEROL
  18. XARELTO [Concomitant]
     Active Substance: RIVAROXABAN
  19. METFORMIN [Concomitant]
     Active Substance: METFORMIN HYDROCHLORIDE

REACTIONS (2)
  - Syncope [Unknown]
  - Cardiac operation [Recovered/Resolved]

NARRATIVE: CASE EVENT DATE: 20141125
